FAERS Safety Report 8851657 (Version 1)
Quarter: 2012Q4

REPORT INFORMATION
  Report Type: 
  Country: US (occurrence: US)
  Receive Date: 20121022
  Receipt Date: 20121022
  Transmission Date: 20130627
  Serious: Yes (Hospitalization)
  Sender: FDA-Public Use
  Company Number: US-TEVA-365748USA

PATIENT
  Age: 66 Year
  Sex: Female
  Weight: 91.71 kg

DRUGS (8)
  1. TREANDA [Suspect]
     Indication: B-CELL LYMPHOMA
     Route: 042
  2. ALPRAZOLAM [Concomitant]
     Indication: ANXIETY
     Dosage: .75 Milligram Daily;
     Route: 048
  3. ATENOLOL [Concomitant]
     Indication: HYPERTENSION
     Dosage: 50 Milligram Daily;
     Route: 048
  4. LISINOPRIL [Concomitant]
     Indication: HYPERTENSION
     Dosage: 40 Milligram Daily;
     Route: 048
  5. NORVASC [Concomitant]
     Indication: HYPERTENSION
     Dosage: 5 Milligram Daily;
     Route: 048
  6. LANTUS [Concomitant]
     Indication: DIABETES MELLITUS
     Route: 058
  7. NOVOLOG [Concomitant]
     Indication: DIABETES MELLITUS
     Route: 058
  8. ZETIA [Concomitant]
     Indication: HYPERLIPIDAEMIA
     Dosage: 10 Milligram Daily;
     Route: 048

REACTIONS (2)
  - Rash macular [Unknown]
  - Pyrexia [Unknown]
